FAERS Safety Report 5482784-7 (Version None)
Quarter: 2007Q4

REPORT INFORMATION
  Report Type: 
  Country: None (occurrence: None)
  Receive Date: 20071011
  Receipt Date: 20070929
  Transmission Date: 20080405
  Serious: Yes (Hospitalization, Other)
  Sender: FDA-Public Use
  Company Number: JP-PFIZER INC-2007082432

PATIENT
  Age: 73 Year
  Sex: Male

DRUGS (2)
  1. GABAPENTIN [Suspect]
     Indication: POST HERPETIC NEURALGIA
     Dosage: TEXT:400 TO 600MG
     Route: 048
  2. CLONAZEPAM [Suspect]
     Indication: POST HERPETIC NEURALGIA
     Dosage: DAILY DOSE:1MG

REACTIONS (5)
  - ATONIC SEIZURES [None]
  - BLOOD CREATINE PHOSPHOKINASE INCREASED [None]
  - DRUG LEVEL INCREASED [None]
  - MYOGLOBIN BLOOD INCREASED [None]
  - PYREXIA [None]
